FAERS Safety Report 8583960-7 (Version None)
Quarter: 2012Q3

REPORT INFORMATION
  Report Type: 
  Country: None (occurrence: None)
  Receive Date: 20120810
  Receipt Date: 20120806
  Transmission Date: 20120928
  Serious: Yes (Hospitalization, Other)
  Sender: FDA-Public Use
  Company Number: US-MERCK-1202USA01304

PATIENT

DRUGS (6)
  1. FOSAMAX PLUS D [Suspect]
     Indication: OSTEOPOROSIS
     Dosage: 70 MG, QW
     Route: 048
     Dates: start: 20020101, end: 20060101
  2. FOSAMAX [Suspect]
     Dosage: 35 MG, QD
     Route: 048
     Dates: start: 20070101
  3. GABAPENTIN [Concomitant]
     Indication: NEURALGIA
     Dosage: UNK
     Dates: start: 19980101
  4. LEVOTHYROXINE SODIUM [Concomitant]
     Indication: THYROID DISORDER
     Dosage: UNK
     Dates: start: 19950101
  5. VITAMINS (UNSPECIFIED) [Concomitant]
     Dosage: UNK
     Dates: start: 19920101
  6. FOSAMAX [Suspect]
     Indication: OSTEOPOROSIS
     Dosage: UNK, QD
     Route: 048
     Dates: start: 19950101, end: 20010101

REACTIONS (6)
  - OSTEOGENESIS IMPERFECTA [None]
  - ARTHRITIS [None]
  - FEMUR FRACTURE [None]
  - ARTHRALGIA [None]
  - BACK PAIN [None]
  - TOOTH DISORDER [None]
